FAERS Safety Report 13511132 (Version 2)
Quarter: 2018Q3

REPORT INFORMATION
  Report Type: Spontaneous
  Country: US (occurrence: US)
  Receive Date: 20170503
  Receipt Date: 20180925
  Transmission Date: 20181010
  Serious: Yes (Other)
  Sender: FDA-Public Use
  Company Number: US-LUNDBECK-DKLU2030105

PATIENT
  Age: 5 Year
  Sex: Female
  Weight: 19 kg

DRUGS (7)
  1. SABRIL [Suspect]
     Active Substance: VIGABATRIN
     Indication: PETIT MAL EPILEPSY
     Dosage: DOSE VARIED OVER TIME TO TIME BASED
     Route: 048
     Dates: start: 20151214
  2. SABRIL [Suspect]
     Active Substance: VIGABATRIN
     Indication: SEIZURE
     Dosage: WEANING BEGAN
     Route: 048
     Dates: start: 201710
  3. SABRIL [Suspect]
     Active Substance: VIGABATRIN
     Dosage: DOSE VARIED OVER TIME TO TIME BASED
     Route: 048
     Dates: start: 201509
  4. KEPPRA [Suspect]
     Active Substance: LEVETIRACETAM
     Indication: PRODUCT USED FOR UNKNOWN INDICATION
     Route: 048
  5. SABRIL [Suspect]
     Active Substance: VIGABATRIN
     Route: 048
     Dates: end: 201712
  6. ONFI [Suspect]
     Active Substance: CLOBAZAM
     Indication: SEIZURE
     Route: 048
  7. ACTH [Suspect]
     Active Substance: CORTICOTROPIN
     Indication: INFANTILE SPASMS
     Route: 065

REACTIONS (9)
  - Fatigue [Not Recovered/Not Resolved]
  - Aggression [Recovering/Resolving]
  - Developmental delay [Unknown]
  - Dysphagia [Unknown]
  - Irritability [Recovering/Resolving]
  - Condition aggravated [Recovering/Resolving]
  - Sedation [Unknown]
  - Retinogram abnormal [Unknown]
  - Therapeutic response decreased [Recovering/Resolving]

NARRATIVE: CASE EVENT DATE: 20161024
